FAERS Safety Report 10038805 (Version 1)
Quarter: 2014Q1

REPORT INFORMATION
  Report Type: Spontaneous
  Country: CH (occurrence: CH)
  Receive Date: 20140326
  Receipt Date: 20140326
  Transmission Date: 20141002
  Serious: Yes (Hospitalization)
  Sender: FDA-Public Use
  Company Number: CH-BAYER-2014-041313

PATIENT
  Age: 92 Year
  Sex: Female

DRUGS (6)
  1. ASPIRIN CARDIO [Suspect]
     Dosage: 100 MG, QD
     Route: 048
     Dates: end: 20140205
  2. CLEXANE [Suspect]
     Dosage: 40 MG, QD
     Route: 058
     Dates: start: 201401
  3. TOREM [Concomitant]
     Dosage: UNK
  4. EXFORGE [Concomitant]
     Dosage: UNK
  5. DAFALGAN [Concomitant]
     Dosage: UNK
  6. DILATREND [Concomitant]
     Dosage: UNK

REACTIONS (4)
  - Gastrointestinal haemorrhage [Recovered/Resolved]
  - Melaena [Recovered/Resolved]
  - Haemorrhagic anaemia [Not Recovered/Not Resolved]
  - Presyncope [Recovered/Resolved]
